FAERS Safety Report 23687012 (Version 3)
Quarter: 2024Q3

REPORT INFORMATION
  Report Type: Spontaneous
  Country: ES (occurrence: ES)
  Receive Date: 20240329
  Receipt Date: 20240706
  Transmission Date: 20241016
  Serious: Yes (Hospitalization, Other)
  Sender: COSETTE PHARMACEUTICALS
  Company Number: ES-COSETTE-CP2024ES000038

PATIENT
  Age: 75 Year
  Sex: Male

DRUGS (1)
  1. BENICAR [Suspect]
     Active Substance: OLMESARTAN MEDOXOMIL
     Indication: Hypertension
     Route: 065

REACTIONS (2)
  - Colitis microscopic [Recovering/Resolving]
  - Gastrointestinal disorder [Recovering/Resolving]
